FAERS Safety Report 7721181-8 (Version None)
Quarter: 2011Q3

REPORT INFORMATION
  Report Type: 
  Country: None (occurrence: None)
  Receive Date: 20110831
  Receipt Date: 20110823
  Transmission Date: 20111222
  Serious: Yes (Death, Hospitalization, Other)
  Sender: FDA-Public Use
  Company Number: JP-BAYER-2011-047756

PATIENT
  Age: 89 Year
  Sex: Female
  Weight: 46 kg

DRUGS (5)
  1. CANDESARTAN CILEXETIL [Concomitant]
     Indication: HYPERTENSION
     Dosage: DAILY DOSE 4 MG
     Route: 048
     Dates: end: 20110705
  2. NEXAVAR [Suspect]
     Indication: HEPATIC NEOPLASM MALIGNANT
     Dosage: 400 MG, BID
     Route: 048
     Dates: start: 20110308, end: 20110525
  3. LOXONIN [Concomitant]
     Indication: PAIN
     Dosage: DAILY DOSE 120 MG
     Route: 048
     Dates: end: 20110705
  4. RABEPRAZOLE SODIUM [Concomitant]
     Indication: PROPHYLAXIS AGAINST GASTROINTESTINAL ULCER
     Dosage: DAILY DOSE 10 MG
     Route: 048
     Dates: end: 20110705
  5. HIRUDOID [Concomitant]
     Indication: PROPHYLAXIS
     Dosage: UNK
     Route: 061
     Dates: start: 20110308, end: 20110504

REACTIONS (6)
  - HEPATIC NEOPLASM MALIGNANT [None]
  - GASTRIC ULCER [None]
  - MALAISE [None]
  - ANAEMIA [None]
  - GASTRIC HAEMORRHAGE [None]
  - FAECES DISCOLOURED [None]
